FAERS Safety Report 6031485-5 (Version None)
Quarter: 2008Q4

REPORT INFORMATION
  Report Type: 
  Country: None (occurrence: None)
  Receive Date: 20081229
  Receipt Date: 20081028
  Transmission Date: 20090506
  Serious: Yes (Hospitalization)
  Sender: FDA-Public Use
  Company Number: 8039187

PATIENT
  Age: 73 Year
  Sex: Female
  Weight: 117.73 kg

DRUGS (12)
  1. XYZAL [Suspect]
     Indication: LYMPHADENOPATHY
     Dosage: PO
     Route: 048
     Dates: start: 20081001, end: 20081104
  2. XYZAL [Suspect]
     Indication: PRURITUS
     Dosage: PO
     Route: 048
     Dates: start: 20081001, end: 20081104
  3. XYZAL [Suspect]
     Indication: SWELLING FACE
     Dosage: PO
     Route: 048
     Dates: start: 20081001, end: 20081104
  4. LANTUS [Suspect]
     Indication: DIABETES MELLITUS
     Dosage: SC
     Route: 058
     Dates: start: 20050101, end: 20081104
  5. STARLIX [Concomitant]
  6. METOPROLOL /00376902/ [Concomitant]
  7. POTASSIUM /00031402/ [Concomitant]
  8. MAGNESIUM /00123201/ [Concomitant]
  9. SYNTHROID [Concomitant]
  10. ZANTAC [Concomitant]
  11. ACIPHEX [Concomitant]
  12. HYDROCHLOROTHIAZIDE [Concomitant]

REACTIONS (2)
  - ANGIOEDEMA [None]
  - DRUG INEFFECTIVE [None]
